FAERS Safety Report 6076880-3 (Version None)
Quarter: 2009Q1

REPORT INFORMATION
  Report Type: 
  Country: None (occurrence: None)
  Receive Date: 20090211
  Receipt Date: 20090205
  Transmission Date: 20090719
  Serious: Yes (Hospitalization)
  Sender: FDA-Public Use
  Company Number: FABR-1000633

PATIENT
  Age: 46 Year
  Sex: Female
  Weight: 65.4 kg

DRUGS (1)
  1. FABRAZYME [Suspect]
     Indication: FABRY'S DISEASE
     Dosage: 70 MG, Q2W; INTRAVENOUS
     Route: 042
     Dates: start: 20050729

REACTIONS (1)
  - CARDIOVASCULAR DISORDER [None]
